FAERS Safety Report 9239269 (Version 1)
Quarter: 2013Q2

REPORT INFORMATION
  Report Type: Spontaneous
  Country: AU (occurrence: AU)
  Receive Date: 20130418
  Receipt Date: 20130418
  Transmission Date: 20140414
  Serious: Yes (Other)
  Sender: FDA-Public Use
  Company Number: AU-ROCHE-1215381

PATIENT
  Sex: 0

DRUGS (9)
  1. HERCEPTIN [Suspect]
     Indication: BREAST CANCER
     Route: 065
     Dates: start: 20071114, end: 20081013
  2. HERCEPTIN [Suspect]
     Route: 065
     Dates: start: 20110908, end: 20120427
  3. HERCEPTIN [Suspect]
     Route: 065
     Dates: start: 20121017, end: 20130405
  4. CAPECITABINE [Suspect]
     Indication: PRODUCT USED FOR UNKNOWN INDICATION
     Route: 065
     Dates: start: 20120528, end: 20120924
  5. TAXOTERE [Concomitant]
     Indication: BREAST CANCER
     Route: 065
     Dates: start: 20071114, end: 20081013
  6. CARBOPLATIN [Concomitant]
     Indication: BREAST CANCER
     Route: 065
     Dates: start: 20071114, end: 20081013
  7. PACLITAXEL [Concomitant]
     Indication: BREAST CANCER
     Route: 065
     Dates: start: 20110908, end: 20120427
  8. LAPATINIB [Concomitant]
     Route: 065
     Dates: start: 20120528, end: 20120924
  9. VINORELBINE [Concomitant]
     Route: 065
     Dates: start: 20121017, end: 20130405

REACTIONS (1)
  - Disease progression [Not Recovered/Not Resolved]
